FAERS Safety Report 4560767-9 (Version None)
Quarter: 2005Q1

REPORT INFORMATION
  Report Type: 
  Country: None (occurrence: None)
  Receive Date: 20050121
  Receipt Date: 20050111
  Transmission Date: 20050727
  Serious: Yes (Hospitalization)
  Sender: FDA-Public Use
  Company Number: 2004-121605-NL

PATIENT
  Age: 77 Year
  Sex: Female

DRUGS (12)
  1. MIRTAZAPINE [Suspect]
     Dosage: 30 MG ORAL
     Route: 048
     Dates: start: 20030303, end: 20030401
  2. SULPIRIDE [Suspect]
     Dosage: ORAL
     Route: 048
     Dates: start: 20030408, end: 20030411
  3. MADOPAR [Concomitant]
  4. PANTOPRAZOLE SODIUM [Concomitant]
  5. OLIMEPIRIDE [Concomitant]
  6. RAMIPRIL [Concomitant]
  7. CARBIMAZOLE [Concomitant]
  8. TILIDINE HYDROCHLORIDE [Concomitant]
  9. OXAZEPAM [Concomitant]
  10. ACETYLSALICYLIC ACID SRT [Concomitant]
  11. PIPAMPERONE [Concomitant]
  12. REBOXETINE [Concomitant]

REACTIONS (1)
  - ELECTROCARDIOGRAM QT CORRECTED INTERVAL PROLONGED [None]
